FAERS Safety Report 6368922-2 (Version None)
Quarter: 2009Q3

REPORT INFORMATION
  Report Type: 
  Country: None (occurrence: None)
  Receive Date: 20090917
  Receipt Date: 20090917
  Transmission Date: 20100115
  Serious: Yes (Other)
  Sender: FDA-Public Use
  Company Number: None

PATIENT
  Age: 48 Year
  Sex: Male
  Weight: 68.0396 kg

DRUGS (2)
  1. CIPROFLOXACIN [Suspect]
     Indication: EPIDIDYMITIS
     Dosage: 1 TAB 12 HOURS OTHER
     Route: 050
     Dates: start: 20090731, end: 20090802
  2. CIPROFLOXACIN [Suspect]
     Indication: INFECTION
     Dosage: 1 TAB 12 HOURS OTHER
     Route: 050
     Dates: start: 20090731, end: 20090802

REACTIONS (8)
  - APTYALISM [None]
  - BACK PAIN [None]
  - BONE PAIN [None]
  - DRUG INEFFECTIVE [None]
  - HYPOPHAGIA [None]
  - JOINT SWELLING [None]
  - MALAISE [None]
  - MUSCULOSKELETAL STIFFNESS [None]
